FAERS Safety Report 23228581 (Version 1)
Quarter: 2023Q4

REPORT INFORMATION
  Report Type: Spontaneous
  Country: MX (occurrence: MX)
  Receive Date: 20231125
  Receipt Date: 20231125
  Transmission Date: 20240110
  Serious: Yes (Other)
  Sender: FDA-Public Use
  Company Number: MX-BAYER-2023A163294

PATIENT
  Age: 70 Year
  Sex: Female

DRUGS (2)
  1. FINERENONE [Suspect]
     Active Substance: FINERENONE
     Indication: Dermatosis
     Dosage: 20 MG POR DIA
     Dates: start: 20230922
  2. CALCIUM ANTACID [Concomitant]
     Active Substance: CALCIUM CARBONATE
     Indication: Chronic kidney disease
     Dates: start: 202310

REACTIONS (2)
  - Chronic kidney disease [None]
  - Dermatosis [Recovered/Resolved]

NARRATIVE: CASE EVENT DATE: 20230901
